FAERS Safety Report 8015510-8 (Version None)
Quarter: 2011Q4

REPORT INFORMATION
  Report Type: 
  Country: None (occurrence: None)
  Receive Date: 20111223
  Receipt Date: 20111207
  Transmission Date: 20120403
  Serious: Yes (Hospitalization)
  Sender: FDA-Public Use
  Company Number: 2011120081

PATIENT
  Age: 80 Year
  Sex: Female

DRUGS (21)
  1. OXYCONTIN [Suspect]
     Indication: PAIN
     Dosage: 60 M (20 MG, 3 IN 1 D), ORAL
     Route: 048
     Dates: start: 20110101, end: 20110208
  2. CALCIMAGON D3 (CALCIUM, CHOLECALCIFEROL) [Concomitant]
  3. TORSEMIDE [Suspect]
     Dosage: 200 MG (200 MG, 1 IN 1 D), ORAL
     Route: 048
     Dates: start: 20110201, end: 20110208
  4. LYRICA [Suspect]
     Dosage: 50 MG (25 MG, 2 IN 1 D), ORAL
     Route: 048
     Dates: end: 20110208
  5. ASPIRIN [Concomitant]
  6. PANTOZOL (PANTOPRAZOLE SODIUM SESQUIHYDRATE) [Concomitant]
  7. FRAGMIN [Concomitant]
  8. METOLAZONE [Suspect]
     Indication: ESSENTIAL HYPERTENSION
     Dosage: 5 MG (5 MG, 1 IN 1 D), ORAL
     Route: 048
     Dates: start: 20110101, end: 20110208
  9. MIDAZOLAM HCL [Suspect]
     Dosage: 4-6 TABLETS A 7.5 MG (7.5 MG), ORAL
     Route: 048
  10. PARAGOL (PHENOLPHTHALEIN, PARAFFIN, LIQUID) [Concomitant]
  11. RAMIPRIL [Suspect]
     Indication: ESSENTIAL HYPERTENSION
     Dosage: 1.25 MG (1.25 MG, 1 IN 1 D), ORAL
     Route: 048
     Dates: end: 20110208
  12. SURMONTIL [Suspect]
     Dosage: 25 MG (25 MG, 1 IN 1 D), ORAL
     Route: 048
     Dates: start: 20110101, end: 20110201
  13. DUSPATALIN (MEBEVERINE EMBONATE) [Concomitant]
  14. VITALUX (ASCORBIC ACID, RIBOFLAVIN, BETACAROTENE, COPPER, SELENIUM, ZI [Concomitant]
  15. TRANSTEC (BUPRENORPHINE) [Suspect]
     Indication: PAIN
     Dosage: 1 PER 3-4 DAYS (52.5 MCG), TRANSDERMAL
     Route: 062
     Dates: start: 20110101
  16. MAGNESIOCARD (MAGNESIUM ASPARTATE HYDROCHLORIDE) [Concomitant]
  17. DUPHALAC [Concomitant]
  18. OXAZEPAM [Suspect]
     Dosage: 15 MG (15 MG, 1 IN 1 D)
     Dates: end: 20110209
  19. BISOPROLOL FUMARATE [Concomitant]
  20. NOVALGIN (METAMIZOLE SODIUM) [Concomitant]
  21. PERENTEROL (SACCHAROMYCES BOULARDII) [Concomitant]

REACTIONS (12)
  - CONFUSIONAL STATE [None]
  - RENAL FAILURE ACUTE [None]
  - DELIRIUM [None]
  - GENERAL PHYSICAL HEALTH DETERIORATION [None]
  - CARDIAC DISORDER [None]
  - SKIN ULCER [None]
  - HYPONATRAEMIA [None]
  - THERAPEUTIC RESPONSE INCREASED [None]
  - MEDICATION ERROR [None]
  - FEMORAL ARTERY OCCLUSION [None]
  - DISORIENTATION [None]
  - ACUTE PRERENAL FAILURE [None]
